FAERS Safety Report 23648257 (Version 6)
Quarter: 2024Q3

REPORT INFORMATION
  Report Type: Spontaneous
  Country: US (occurrence: US)
  Receive Date: 20240319
  Receipt Date: 20240724
  Transmission Date: 20241016
  Serious: Yes (Other)
  Sender: JOHNSON AND JOHNSON
  Company Number: US-JNJFOC-20240338384

PATIENT
  Age: 78 Year
  Sex: Female
  Weight: 61.7 kg

DRUGS (21)
  1. OPSUMIT [Suspect]
     Active Substance: MACITENTAN
     Indication: Pulmonary arterial hypertension
     Route: 048
     Dates: start: 202201
  2. OPSUMIT [Suspect]
     Active Substance: MACITENTAN
     Dosage: EXPIRY- JUL-2026
     Route: 048
     Dates: start: 20221215
  3. TYVASO [Suspect]
     Active Substance: TREPROSTINIL
     Indication: Pulmonary arterial hypertension
     Dosage: 0.6 MG/ML
     Route: 055
     Dates: start: 20240202, end: 2024
  4. TYVASO [Suspect]
     Active Substance: TREPROSTINIL
     Route: 055
     Dates: start: 2024, end: 2024
  5. TYVASO [Suspect]
     Active Substance: TREPROSTINIL
     Route: 055
     Dates: start: 2024, end: 2024
  6. TYVASO [Suspect]
     Active Substance: TREPROSTINIL
     Route: 055
     Dates: start: 2024
  7. TYVASO [Suspect]
     Active Substance: TREPROSTINIL
     Route: 055
     Dates: start: 202405
  8. SOTATERCEPT [Suspect]
     Active Substance: SOTATERCEPT
     Indication: Product used for unknown indication
     Route: 065
     Dates: end: 2024
  9. OXYGEN [Suspect]
     Active Substance: OXYGEN
     Indication: Product used for unknown indication
     Route: 065
  10. LEVOTHYROXINE SODIUM [Concomitant]
     Active Substance: LEVOTHYROXINE SODIUM
  11. POTASSIUM CHLORIDE [Concomitant]
     Active Substance: POTASSIUM CHLORIDE
  12. TADALAFIL [Concomitant]
     Active Substance: TADALAFIL
  13. DIAZEPAM [Concomitant]
     Active Substance: DIAZEPAM
  14. GABAPENTIN [Concomitant]
     Active Substance: GABAPENTIN
  15. VITAMIN D3 [Concomitant]
     Active Substance: CHOLECALCIFEROL
  16. MAGNESIUM CHLORIDE [Concomitant]
     Active Substance: MAGNESIUM CHLORIDE
  17. OMEPRAZOLE [Concomitant]
     Active Substance: OMEPRAZOLE
  18. PRASUGREL HYDROCHLORIDE [Concomitant]
     Active Substance: PRASUGREL HYDROCHLORIDE
  19. FUROSEMIDE [Concomitant]
     Active Substance: FUROSEMIDE
  20. ASPIRIN [Concomitant]
     Active Substance: ASPIRIN
  21. LORATADINE [Concomitant]
     Active Substance: LORATADINE

REACTIONS (24)
  - Anaemia [Not Recovered/Not Resolved]
  - Haemorrhage [Recovered/Resolved]
  - Nasal congestion [Unknown]
  - Product dose omission issue [Unknown]
  - Headache [Recovered/Resolved]
  - Nausea [Unknown]
  - Vomiting [Unknown]
  - Cystitis [Unknown]
  - Platelet count decreased [Unknown]
  - Abdominal discomfort [Unknown]
  - Nasopharyngitis [Unknown]
  - Chills [Unknown]
  - Hyperhidrosis [Unknown]
  - Asthenia [Unknown]
  - Erythema [Unknown]
  - Diarrhoea [Unknown]
  - Dizziness [Unknown]
  - Photophobia [Unknown]
  - Respiratory tract congestion [Unknown]
  - Epistaxis [Unknown]
  - Influenza [Unknown]
  - Nasal mucosal ulcer [Unknown]
  - Scab [Unknown]
  - Device malfunction [Unknown]

NARRATIVE: CASE EVENT DATE: 20240101
